FAERS Safety Report 18703868 (Version 1)
Quarter: 2021Q1

REPORT INFORMATION
  Report Type: Spontaneous
  Country: US (occurrence: US)
  Receive Date: 20210106
  Receipt Date: 20210106
  Transmission Date: 20210419
  Serious: No
  Sender: FDA-Public Use
  Company Number: US-TARO-2020TAR01422

PATIENT

DRUGS (1)
  1. ECONAZOLE NITRATE CREAM 1% [Suspect]
     Active Substance: ECONAZOLE NITRATE
     Indication: FUNGAL INFECTION
     Dosage: BID, TOPICALLY ON RIGHT FOOT
     Route: 061
     Dates: start: 2016

REACTIONS (1)
  - Drug ineffective [Unknown]
